FAERS Safety Report 24170736 (Version 1)
Quarter: 2024Q3

REPORT INFORMATION
  Report Type: Spontaneous
  Country: US (occurrence: US)
  Receive Date: 20240805
  Receipt Date: 20240805
  Transmission Date: 20241017
  Serious: Yes (Hospitalization)
  Sender: MYLAN
  Company Number: US-MYLANLABS-2024M1072678

PATIENT
  Age: 20 Year
  Sex: Male

DRUGS (2)
  1. HEPARIN [Suspect]
     Active Substance: HEPARIN SODIUM
     Indication: Jugular vein thrombosis
     Dosage: UNK, INFUSION
     Route: 065
  2. DORNASE ALFA [Suspect]
     Active Substance: DORNASE ALFA
     Indication: Infectious pleural effusion
     Dosage: UNK
     Route: 034

REACTIONS (2)
  - Lemierre syndrome [Recovered/Resolved]
  - Haemothorax [Recovered/Resolved]
